FAERS Safety Report 12468851 (Version 1)
Quarter: 2016Q2

REPORT INFORMATION
  Report Type: Other
  Country: US (occurrence: US)
  Receive Date: 20160615
  Receipt Date: 20160615
  Transmission Date: 20160815
  Serious: Yes (Hospitalization)
  Sender: FDA-Public Use
  Company Number: US-MYLANLABS-2016M1023778

PATIENT

DRUGS (2)
  1. GUANFACINE. [Suspect]
     Active Substance: GUANFACINE
     Dosage: UNK
     Dates: start: 2016
  2. GUANFACINE. [Suspect]
     Active Substance: GUANFACINE
     Dosage: UNK
     Dates: start: 2016, end: 2016

REACTIONS (4)
  - Hospitalisation [Recovered/Resolved]
  - Anger [Unknown]
  - Irritability [Unknown]
  - Aggression [Recovered/Resolved]

NARRATIVE: CASE EVENT DATE: 2016
